FAERS Safety Report 7704880-3 (Version None)
Quarter: 2011Q3

REPORT INFORMATION
  Report Type: 
  Country: None (occurrence: None)
  Receive Date: 20110823
  Receipt Date: 20110818
  Transmission Date: 20111222
  Serious: Yes (Other)
  Sender: FDA-Public Use
  Company Number: US-PFIZER INC-2007035964

PATIENT
  Sex: Male

DRUGS (1)
  1. NEURONTIN [Suspect]
     Indication: BACK PAIN
     Dosage: 800 MG, 3X/DAY
     Dates: start: 20010101

REACTIONS (5)
  - AMNESIA [None]
  - HEART RATE INCREASED [None]
  - CONSTIPATION [None]
  - SUICIDAL IDEATION [None]
  - DEPRESSION [None]
